FAERS Safety Report 5091900-0 (Version None)
Quarter: 2006Q3

REPORT INFORMATION
  Report Type: 
  Country: None (occurrence: None)
  Receive Date: 20060825
  Receipt Date: 20060817
  Transmission Date: 20061208
  Serious: Yes (Life-Threatening, Hospitalization, Other)
  Sender: FDA-Public Use
  Company Number: 2006084665

PATIENT
  Age: 80 Year
  Sex: Male
  Weight: 70 kg

DRUGS (5)
  1. LIPITOR [Suspect]
     Indication: HYPERCHOLESTEROLAEMIA
     Dosage: 10 MG (10 MG, 1 IN 1 D), ORAL
     Route: 048
     Dates: start: 20060317
  2. PLETAL [Suspect]
     Indication: ANGINA PECTORIS
     Dosage: 200 MG (100 MG BID), ORAL
     Route: 048
     Dates: start: 19990813
  3. PLETAL [Suspect]
     Indication: HYPERLIPIDAEMIA
     Dosage: 200 MG (100 MG BID), ORAL
     Route: 048
     Dates: start: 19990813
  4. ASPIRIN [Suspect]
     Indication: ANGINA PECTORIS
     Dosage: 200 MG (100 MG, BID),. ORAL
     Route: 048
     Dates: start: 19981127
  5. ASPIRIN [Suspect]
     Indication: HYPERLIPIDAEMIA
     Dosage: 200 MG (100 MG, BID),. ORAL
     Route: 048
     Dates: start: 19981127

REACTIONS (6)
  - BLOOD DISORDER [None]
  - GINGIVAL BLEEDING [None]
  - HAEMATOMA [None]
  - HAEMORRHAGIC DIATHESIS [None]
  - LIP HAEMORRHAGE [None]
  - PANCYTOPENIA [None]
